FAERS Safety Report 5502440-6 (Version None)
Quarter: 2007Q4

REPORT INFORMATION
  Report Type: 
  Country: None (occurrence: None)
  Receive Date: 20071030
  Receipt Date: 20071018
  Transmission Date: 20080405
  Serious: Yes (Other)
  Sender: FDA-Public Use
  Company Number: US-PFIZER INC-2007078460

PATIENT
  Sex: Female

DRUGS (4)
  1. CHANTIX [Suspect]
  2. LIPITOR [Suspect]
  3. METHOTREXATE [Suspect]
  4. ETANERCEPT [Suspect]

REACTIONS (4)
  - DIZZINESS [None]
  - LOSS OF CONSCIOUSNESS [None]
  - NAUSEA [None]
  - PARALYSIS [None]
